FAERS Safety Report 5553966-0 (Version None)
Quarter: 2007Q4

REPORT INFORMATION
  Report Type: 
  Country: None (occurrence: None)
  Receive Date: 20071213
  Receipt Date: 20071201
  Transmission Date: 20080405
  Serious: Yes (Other)
  Sender: FDA-Public Use
  Company Number: US-ELI_LILLY_AND_COMPANY-US200709003456

PATIENT
  Sex: Female

DRUGS (10)
  1. GEMZAR [Suspect]
     Indication: OVARIAN CANCER RECURRENT
     Dosage: 1000 MG/M2, OTHER
     Dates: start: 20070611, end: 20071009
  2. CARBOPLATIN [Concomitant]
     Indication: OVARIAN CANCER RECURRENT
     Dosage: UNK, OTHER
     Dates: start: 20070611, end: 20071009
  3. SYNTHROID [Concomitant]
     Indication: HYPOTHYROIDISM
     Dosage: 112 UG, UNK
  4. ACIPHEX [Concomitant]
     Dosage: UNK, DAILY (1/D)
  5. PROCRIT [Concomitant]
  6. NEUPOGEN [Concomitant]
  7. EMEND [Concomitant]
  8. ZOFRAN [Concomitant]
  9. COMPAZINE /00013304/ [Concomitant]
  10. ATIVAN [Concomitant]
     Dosage: UNK, AS NEEDED

REACTIONS (4)
  - FATIGUE [None]
  - MALIGNANT NEOPLASM PROGRESSION [None]
  - MALIGNANT PLEURAL EFFUSION [None]
  - PERICARDIAL EFFUSION [None]
